FAERS Safety Report 15941350 (Version 2)
Quarter: 2019Q1

REPORT INFORMATION
  Report Type: Spontaneous
  Country: DE (occurrence: DE)
  Receive Date: 20190208
  Receipt Date: 20190301
  Transmission Date: 20190417
  Serious: No
  Sender: FDA-Public Use
  Company Number: DE-ASCEND THERAPEUTICS-2062449

PATIENT
  Sex: Female
  Weight: 60 kg

DRUGS (1)
  1. ESTROGEL [Suspect]
     Active Substance: ESTRADIOL
     Dates: start: 201811

REACTIONS (1)
  - Arthralgia [Unknown]
